FAERS Safety Report 7149158-4 (Version None)
Quarter: 2010Q4

REPORT INFORMATION
  Report Type: 
  Country: None (occurrence: None)
  Receive Date: 20101209
  Receipt Date: 20101202
  Transmission Date: 20110411
  Serious: Yes (Life-Threatening, Other)
  Sender: FDA-Public Use
  Company Number: US-ROCHE-746403

PATIENT
  Sex: Male
  Weight: 68 kg

DRUGS (10)
  1. PEGINTERFERON ALFA-2A [Suspect]
     Route: 058
     Dates: start: 20100430
  2. RIBAVIRIN [Suspect]
     Dosage: 400/600 MG - MILLIGRAM
     Route: 048
     Dates: start: 20100430
  3. NITAZOXANIDE [Suspect]
     Route: 048
     Dates: start: 20100402
  4. ATRIPLA [Concomitant]
     Dosage: HS - AT BEDTIME
     Route: 048
  5. TEMAZEPAM [Concomitant]
     Indication: INSOMNIA
     Route: 048
     Dates: start: 20080520
  6. ASPIRIN [Concomitant]
     Route: 048
     Dates: start: 20050301
  7. DRYSOL [Concomitant]
     Indication: HYPERHIDROSIS
     Dosage: 20%
     Route: 061
     Dates: start: 20091202
  8. IBUPROFEN [Concomitant]
     Route: 048
     Dates: start: 20070115
  9. TRAMADOL [Concomitant]
     Indication: BACK PAIN
     Route: 048
     Dates: start: 20100709
  10. NEUPOGEN [Concomitant]
     Indication: NEUTROPENIA
     Route: 058
     Dates: start: 20100727

REACTIONS (2)
  - ASPARTATE AMINOTRANSFERASE INCREASED [None]
  - BLOOD CREATINE PHOSPHOKINASE INCREASED [None]
